FAERS Safety Report 6173681-2 (Version None)
Quarter: 2009Q2

REPORT INFORMATION
  Report Type: 
  Country: None (occurrence: None)
  Receive Date: 20090429
  Receipt Date: 20090429
  Transmission Date: 20091009
  Serious: No
  Sender: FDA-Public Use
  Company Number: None

PATIENT
  Sex: Male
  Weight: 104.7809 kg

DRUGS (9)
  1. VIVAGLOBIN [Suspect]
     Indication: IMMUNODEFICIENCY COMMON VARIABLE
     Dosage: 10.08 GRAMS ONCE WEEKLY SQ
     Route: 058
     Dates: start: 20090424
  2. AMLODIPINE [Concomitant]
  3. ATORVASTATIN [Concomitant]
  4. VALACYCLOVIR [Concomitant]
  5. OMEPRAZOLE [Concomitant]
  6. CALCIUM [Concomitant]
  7. M.V.I. [Concomitant]
  8. EZETIMIBE [Concomitant]
  9. ALENDRONATE SODIUM [Concomitant]

REACTIONS (4)
  - CHILLS [None]
  - FATIGUE [None]
  - HEADACHE [None]
  - MALAISE [None]
